FAERS Safety Report 10098685 (Version 2)
Quarter: 2014Q2

REPORT INFORMATION
  Report Type: Spontaneous
  Country: CA (occurrence: CA)
  Receive Date: 20140423
  Receipt Date: 20140423
  Transmission Date: 20141212
  Serious: Yes (Other)
  Sender: FDA-Public Use
  Company Number: CA-ASTRAZENECA-2014SE19907

PATIENT
  Age: 69 Year
  Sex: Female
  Weight: 66.7 kg

DRUGS (6)
  1. CRESTOR [Suspect]
     Indication: BLOOD CHOLESTEROL INCREASED
     Route: 048
     Dates: start: 20140318, end: 20140320
  2. ESTER C [Concomitant]
     Dosage: 1000
  3. PROBIOTIC [Concomitant]
  4. VITAMIN D [Concomitant]
     Dosage: 1000
  5. MAGNESIUM [Concomitant]
  6. MULTIVITAMIN [Concomitant]

REACTIONS (7)
  - Tongue discolouration [Recovered/Resolved]
  - Breast pain [Recovered/Resolved]
  - Dysgeusia [Recovered/Resolved]
  - Influenza like illness [Recovered/Resolved]
  - Sluggishness [Recovered/Resolved]
  - Fatigue [Recovered/Resolved]
  - Nausea [Recovered/Resolved]
